FAERS Safety Report 7954161-8 (Version None)
Quarter: 2011Q4

REPORT INFORMATION
  Report Type: 
  Country: None (occurrence: None)
  Receive Date: 20111202
  Receipt Date: 20111121
  Transmission Date: 20120403
  Serious: Yes (Hospitalization, Other)
  Sender: FDA-Public Use
  Company Number: US-CELGENEUS-163-21880-11111365

PATIENT
  Sex: Male

DRUGS (19)
  1. FUROSEMIDE [Concomitant]
     Dosage: 20 MILLIGRAM
     Route: 048
     Dates: start: 20110913
  2. PENTOXIFYLLINE [Concomitant]
     Dosage: 400 MILLIGRAM
     Route: 048
     Dates: start: 20110913
  3. BACTRIM [Concomitant]
     Route: 065
  4. REVLIMID [Suspect]
     Indication: MULTIPLE MYELOMA
     Dosage: 25 MILLIGRAM
     Route: 048
     Dates: start: 20110915, end: 20111102
  5. ASPIRIN [Concomitant]
     Dosage: 81 MILLIGRAM
     Route: 048
     Dates: start: 20110913
  6. TRANSFUSION [Concomitant]
     Route: 041
     Dates: start: 20111101
  7. PROCHLORPERAZINE [Concomitant]
     Dosage: 10 MILLIGRAM
     Route: 048
     Dates: start: 20110913
  8. METOPROLOL [Concomitant]
     Dosage: 25 MILLIGRAM
     Route: 048
     Dates: start: 20110913
  9. COMPAZINE [Concomitant]
     Dosage: 10 MILLIGRAM
     Route: 065
  10. CRESTOR [Concomitant]
     Dosage: 20 MILLIGRAM
     Route: 048
     Dates: start: 20110913
  11. FERROUS SULFATE TAB [Concomitant]
     Dosage: 325 MILLIGRAM
     Route: 065
  12. ACYCLOVIR [Concomitant]
     Dosage: 400 MILLIGRAM
     Route: 048
     Dates: start: 20110913
  13. DECADRON [Concomitant]
     Dosage: 40 MILLIGRAM
     Route: 065
  14. TAMSULOSIN HCL [Concomitant]
     Dosage: .4 MILLIGRAM
     Route: 048
     Dates: start: 20110913
  15. NEXIUM [Concomitant]
     Dosage: 40 MILLIGRAM
     Route: 048
     Dates: start: 20110913
  16. ZITHROMAX [Concomitant]
     Route: 065
  17. REVLIMID [Suspect]
     Indication: AMYLOIDOSIS
  18. SULFAMETHOXAZOLE AND TRIMETHOPRIM [Concomitant]
     Dosage: 400-80MG
     Route: 048
     Dates: start: 20110913
  19. POTASSIUM ACETATE [Concomitant]
     Dosage: 75 MILLIGRAM
     Route: 048
     Dates: start: 20110913

REACTIONS (6)
  - HAEMORRHAGE [None]
  - LOCALISED INTRAABDOMINAL FLUID COLLECTION [None]
  - HYPOTENSION [None]
  - HAEMOGLOBIN DECREASED [None]
  - OXYGEN SATURATION DECREASED [None]
  - AMYLOIDOSIS [None]
